FAERS Safety Report 4313760-5 (Version None)
Quarter: 2004Q1

REPORT INFORMATION
  Report Type: 
  Country: None (occurrence: None)
  Receive Date: 20040304
  Receipt Date: 20031213
  Transmission Date: 20041129
  Serious: Yes (Hospitalization)
  Sender: FDA-Public Use
  Company Number: 2003119018

PATIENT
  Age: 28 Year
  Sex: Female
  Weight: 86.1834 kg

DRUGS (1)
  1. GEODON [Suspect]
     Indication: PARANOIA
     Dosage: 240 MG, ORAL
     Route: 048
     Dates: start: 20030901

REACTIONS (6)
  - DELIRIUM [None]
  - DRUG INEFFECTIVE [None]
  - MEDICATION ERROR [None]
  - OVERDOSE [None]
  - UNEVALUABLE EVENT [None]
  - VOMITING [None]
